FAERS Safety Report 8217322-9 (Version None)
Quarter: 2012Q1

REPORT INFORMATION
  Report Type: 
  Country: None (occurrence: None)
  Receive Date: 20120315
  Receipt Date: 20120308
  Transmission Date: 20120608
  Serious: No
  Sender: FDA-Public Use
  Company Number: ADR-2012-00553

PATIENT
  Sex: Male

DRUGS (1)
  1. BACLOFEN [Suspect]
     Indication: MUSCLE SPASTICITY

REACTIONS (1)
  - DEVICE DAMAGE [None]
